FAERS Safety Report 7985749-6 (Version None)
Quarter: 2011Q4

REPORT INFORMATION
  Report Type: 
  Country: None (occurrence: None)
  Receive Date: 20111214
  Receipt Date: 20111207
  Transmission Date: 20120403
  Serious: Yes (Hospitalization)
  Sender: FDA-Public Use
  Company Number: 2011SP056989

PATIENT
  Sex: Male

DRUGS (4)
  1. VITAMIN D [Concomitant]
  2. MIRTAZAPINE [Suspect]
     Indication: MATERNAL EXPOSURE DURING PREGNANCY
     Dosage: TRPL
  3. ELEVIT RDI [Concomitant]
  4. QUETIAPINE FUMARATE [Suspect]
     Indication: PRODUCT USED FOR UNKNOWN INDICATION
     Dosage: TRPL

REACTIONS (6)
  - MATERNAL DRUGS AFFECTING FOETUS [None]
  - HYPERREFLEXIA [None]
  - NEONATAL RESPIRATORY DISTRESS SYNDROME [None]
  - CAESAREAN SECTION [None]
  - PREMATURE BABY [None]
  - EXAGGERATED STARTLE RESPONSE [None]
